FAERS Safety Report 10998331 (Version 1)
Quarter: 2015Q2

REPORT INFORMATION
  Report Type: Spontaneous
  Country: FR (occurrence: None)
  Receive Date: 20150406
  Receipt Date: 20150406
  Transmission Date: 20150821
  Serious: Yes (Congenital Anomaly, Other)
  Sender: FDA-Public Use
  Company Number: FR2015GSK039475

PATIENT
  Sex: Female

DRUGS (2)
  1. INTELENCE [Suspect]
     Active Substance: ETRAVIRINE
     Indication: HIV INFECTION
     Route: 064
  2. KIVEXA [Suspect]
     Active Substance: ABACAVIR SULFATE\LAMIVUDINE
     Indication: HIV INFECTION
     Route: 064

REACTIONS (3)
  - Brain malformation [None]
  - Congenital central nervous system anomaly [None]
  - Maternal drugs affecting foetus [None]

NARRATIVE: CASE EVENT DATE: 20150113
